FAERS Safety Report 8186782-4 (Version None)
Quarter: 2012Q1

REPORT INFORMATION
  Report Type: 
  Country: None (occurrence: None)
  Receive Date: 20120306
  Receipt Date: 20120306
  Transmission Date: 20120608
  Serious: No
  Sender: FDA-Public Use
  Company Number: None

PATIENT
  Age: 56 Year
  Sex: Male
  Weight: 90.718 kg

DRUGS (1)
  1. ZOCOR [Suspect]
     Indication: BLOOD CHOLESTEROL INCREASED
     Dosage: 1 TAB / 20 MG
     Route: 048
     Dates: start: 20051208, end: 20120305

REACTIONS (2)
  - HYPERTENSION [None]
  - DIABETES MELLITUS [None]
